FAERS Safety Report 9749871 (Version 3)
Quarter: 2014Q1

REPORT INFORMATION
  Report Type: Spontaneous
  Country: US (occurrence: US)
  Receive Date: 20131212
  Receipt Date: 20140207
  Transmission Date: 20141002
  Serious: Yes (Hospitalization, Other)
  Sender: FDA-Public Use
  Company Number: US-GILEAD-2013-0089673

PATIENT
  Sex: Female

DRUGS (5)
  1. LETAIRIS [Suspect]
     Indication: PULMONARY ARTERIAL HYPERTENSION
     Dosage: 5 MG, QD
     Dates: start: 20131001
  2. LETAIRIS [Suspect]
     Indication: SYSTEMIC SCLEROSIS
  3. ADCIRCA [Concomitant]
  4. VELETRI [Concomitant]
  5. REMODULIN [Concomitant]

REACTIONS (6)
  - Plasma cell myeloma [Unknown]
  - Back pain [Unknown]
  - Therapy change [Unknown]
  - Platelet count decreased [Unknown]
  - Anaemia [Unknown]
  - Haemoglobin decreased [Unknown]
